FAERS Safety Report 9528972 (Version 1)
Quarter: 2013Q3

REPORT INFORMATION
  Report Type: Spontaneous
  Country: US (occurrence: US)
  Receive Date: 20130917
  Receipt Date: 20130917
  Transmission Date: 20140515
  Serious: No
  Sender: FDA-Public Use
  Company Number: US-BANPHARM-20131343

PATIENT
  Age: 85 Year
  Sex: Female
  Weight: 70.31 kg

DRUGS (3)
  1. ZYRTEC LIQUID GELS 10 MG [Suspect]
     Indication: EYE DISORDER
     Dosage: 1 DF, ONCE,
     Route: 048
     Dates: start: 20130513
  2. NITROGLYCERIN [Concomitant]
  3. ZOCOR TABS [Concomitant]
     Dosage: 20 MG,

REACTIONS (1)
  - Drug ineffective [Unknown]
